FAERS Safety Report 11283618 (Version 5)
Quarter: 2017Q1

REPORT INFORMATION
  Report Type: Spontaneous
  Country: US (occurrence: US)
  Receive Date: 20150720
  Receipt Date: 20170130
  Transmission Date: 20170428
  Serious: Yes (Hospitalization, Other)
  Sender: FDA-Public Use
  Company Number: US-PFIZER INC-2015233113

PATIENT
  Age: 80 Year
  Sex: Female

DRUGS (2)
  1. IBRANCE [Suspect]
     Active Substance: PALBOCICLIB
     Dosage: 100 MG, UNK
     Dates: start: 20150630
  2. IBRANCE [Suspect]
     Active Substance: PALBOCICLIB
     Dosage: 100 MG, UNK
     Dates: start: 20150701, end: 20150710

REACTIONS (10)
  - Constipation [Unknown]
  - Infection [Unknown]
  - Back pain [Unknown]
  - Bronchitis [Unknown]
  - Hypertension [Unknown]
  - Urinary tract infection [Unknown]
  - Fatigue [Unknown]
  - Restless legs syndrome [Unknown]
  - Asthenia [Unknown]
  - Fall [Unknown]
